FAERS Safety Report 22524552 (Version 1)
Quarter: 2023Q2

REPORT INFORMATION
  Report Type: Spontaneous
  Country: US (occurrence: US)
  Receive Date: 20230606
  Receipt Date: 20230606
  Transmission Date: 20230722
  Serious: Yes (Hospitalization, Other)
  Sender: FDA-Public Use
  Company Number: US-GSKCCFUS-Case-01713395_AE-96612

PATIENT

DRUGS (1)
  1. NUCALA [Suspect]
     Active Substance: MEPOLIZUMAB
     Indication: Asthma
     Dosage: 100 MG/ML
     Route: 058

REACTIONS (7)
  - COVID-19 pneumonia [Recovered/Resolved]
  - Herpes zoster [Recovered/Resolved]
  - Asthma [Unknown]
  - Injection site pain [Unknown]
  - Wheezing [Unknown]
  - Drug ineffective [Unknown]
  - Product dose omission issue [Unknown]
